FAERS Safety Report 13122328 (Version 2)
Quarter: 2017Q3

REPORT INFORMATION
  Report Type: Report from Study
  Country: None (occurrence: US)
  Receive Date: 20170117
  Receipt Date: 20170731
  Transmission Date: 20171127
  Serious: Yes (Other)
  Sender: FDA-Public Use
  Company Number: US-ABBVIE-17K-163-1835561-00

PATIENT
  Sex: Female

DRUGS (1)
  1. HUMIRA [Suspect]
     Active Substance: ADALIMUMAB
     Indication: ANKYLOSING SPONDYLITIS
     Route: 058
     Dates: end: 201705

REACTIONS (5)
  - Oropharyngeal pain [Unknown]
  - Drug effect decreased [Not Recovered/Not Resolved]
  - Rotator cuff syndrome [Recovered/Resolved]
  - Onychoclasis [Recovering/Resolving]
  - Sinusitis [Recovering/Resolving]
